FAERS Safety Report 23982821 (Version 1)
Quarter: 2024Q2

REPORT INFORMATION
  Report Type: Spontaneous
  Country: US (occurrence: None)
  Receive Date: 20240617
  Receipt Date: 20240617
  Transmission Date: 20240715
  Serious: Yes (Other)
  Sender: FDA-Public Use
  Company Number: None

PATIENT
  Age: 63 Year
  Sex: Female
  Weight: 78.75 kg

DRUGS (1)
  1. REFRESH DIGITAL PF [Suspect]
     Active Substance: CARBOXYMETHYLCELLULOSE SODIUM\GLYCERIN\POLYSORBATE 80
     Indication: Dry eye
     Dosage: OTHER FREQUENCY : 5 OR 6 TIMES A DAY;?
     Route: 047
     Dates: start: 20240606, end: 20240614

REACTIONS (7)
  - Instillation site erythema [None]
  - Instillation site irritation [None]
  - Vision blurred [None]
  - Photophobia [None]
  - Instillation site irritation [None]
  - Eye pain [None]
  - Therapeutic product effect incomplete [None]

NARRATIVE: CASE EVENT DATE: 20240612
